FAERS Safety Report 9225190 (Version 1)
Quarter: 2013Q2

REPORT INFORMATION
  Report Type: Spontaneous
  Country: FR (occurrence: FR)
  Receive Date: 20130411
  Receipt Date: 20130411
  Transmission Date: 20140414
  Serious: Yes (Hospitalization)
  Sender: FDA-Public Use
  Company Number: FR-ROCHE-1206895

PATIENT
  Age: 70 Year
  Sex: Male

DRUGS (17)
  1. METALYSE [Suspect]
     Indication: ACUTE CORONARY SYNDROME
     Route: 065
     Dates: start: 20100604, end: 20100604
  2. PREVISCAN (FRANCE) [Suspect]
     Indication: ACUTE CORONARY SYNDROME
     Route: 048
     Dates: end: 20100603
  3. KARDEGIC [Suspect]
     Indication: ACUTE CORONARY SYNDROME
     Route: 048
     Dates: end: 20100603
  4. KARDEGIC [Suspect]
     Route: 048
     Dates: start: 20100605, end: 20100608
  5. KARDEGIC [Suspect]
     Route: 048
     Dates: start: 20100614
  6. LOVENOX [Suspect]
     Indication: ACUTE CORONARY SYNDROME
     Dosage: DOSE: 6000U
     Route: 065
     Dates: start: 20100604, end: 20100605
  7. LOVENOX [Suspect]
     Dosage: DOSE: 8000U
     Route: 058
     Dates: start: 20100607, end: 20100608
  8. PLAVIX [Concomitant]
     Route: 065
     Dates: start: 20100604, end: 20100605
  9. COVERSYL [Concomitant]
     Route: 065
  10. AMLOR [Concomitant]
     Route: 065
  11. DETENSIEL [Concomitant]
     Route: 065
  12. TAHOR [Concomitant]
     Route: 065
  13. MOPRAL (FRANCE) [Concomitant]
     Route: 065
  14. IMOVANE [Concomitant]
     Route: 065
  15. SYMBICORT [Concomitant]
  16. ATARAX (FRANCE) [Concomitant]
     Route: 065
  17. RANIPLEX [Concomitant]
     Route: 065

REACTIONS (7)
  - Haematuria [Recovered/Resolved]
  - Rectal haemorrhage [Recovered/Resolved]
  - Cerebral haematoma [Not Recovered/Not Resolved]
  - Cerebral haemorrhage [Not Recovered/Not Resolved]
  - Dysarthria [Recovered/Resolved]
  - Somnolence [Unknown]
  - Haemoglobin decreased [Unknown]
